FAERS Safety Report 20860692 (Version 1)
Quarter: 2022Q2

REPORT INFORMATION
  Report Type: Spontaneous
  Country: BG (occurrence: BG)
  Receive Date: 20220523
  Receipt Date: 20220523
  Transmission Date: 20220720
  Serious: Yes (Hospitalization, Other)
  Sender: FDA-Public Use
  Company Number: BG-009507513-2205BGR004769

PATIENT
  Age: 68 Year
  Sex: Male

DRUGS (1)
  1. PEMBROLIZUMAB [Suspect]
     Active Substance: PEMBROLIZUMAB
     Indication: Malignant melanoma stage III
     Dosage: 400 MILLIGRAM, EVERY 6 WEEKS (Q6W)
     Route: 042
     Dates: start: 202012, end: 202111

REACTIONS (10)
  - COVID-19 pneumonia [Unknown]
  - Hallucination [Unknown]
  - Cerebral atrophy [Unknown]
  - Malignant neoplasm progression [Unknown]
  - Immune-mediated lung disease [Unknown]
  - Immune-mediated lung disease [Unknown]
  - Somatic symptom disorder [Unknown]
  - Delusion [Unknown]
  - Clostridium test positive [Unknown]
  - Mycoplasma test positive [Unknown]

NARRATIVE: CASE EVENT DATE: 20210101
